FAERS Safety Report 20406454 (Version 1)
Quarter: 2022Q1

REPORT INFORMATION
  Report Type: Report from Study
  Country: US (occurrence: US)
  Receive Date: 20220131
  Receipt Date: 20220131
  Transmission Date: 20220423
  Serious: Yes (Other)
  Sender: FDA-Public Use
  Company Number: US-UCBSA-2021054252

PATIENT
  Age: 48 Year
  Sex: Female

DRUGS (3)
  1. CERTOLIZUMAB PEGOL [Suspect]
     Active Substance: CERTOLIZUMAB PEGOL
     Indication: Ankylosing spondylitis
     Dosage: 400 MILLIGRAM, EV 2 WEEKS(QOW)
     Dates: start: 20211008
  2. CERTOLIZUMAB PEGOL [Suspect]
     Active Substance: CERTOLIZUMAB PEGOL
     Dosage: 400 MILLIGRAM, EV 4 WEEKS
     Dates: start: 2021
  3. MELOXICAM [Concomitant]
     Active Substance: MELOXICAM
     Indication: Pain
     Dosage: UNK

REACTIONS (3)
  - Arthralgia [Not Recovered/Not Resolved]
  - Pain [Recovering/Resolving]
  - Intervertebral disc protrusion [Not Recovered/Not Resolved]

NARRATIVE: CASE EVENT DATE: 20211101
